FAERS Safety Report 9668630 (Version 2)
Quarter: 2013Q4

REPORT INFORMATION
  Report Type: Spontaneous
  Country: US (occurrence: US)
  Receive Date: 20131105
  Receipt Date: 20131218
  Transmission Date: 20140711
  Serious: Yes (Other)
  Sender: FDA-Public Use
  Company Number: US-AMGEN-USASP2013077007

PATIENT
  Age: 64 Year
  Sex: Female
  Weight: 64.85 kg

DRUGS (9)
  1. PROLIA [Suspect]
     Indication: OSTEOPOROSIS POSTMENOPAUSAL
     Dosage: 60 MG, Q6MO, ONCE
     Route: 058
     Dates: start: 20130412
  2. PLAVIX [Concomitant]
  3. CRESTOR [Concomitant]
  4. METOPROLOL [Concomitant]
  5. TRANDOLAPRIL [Concomitant]
  6. VITAMIN D                          /00107901/ [Concomitant]
  7. CALCIUM [Concomitant]
  8. MULTIVITAMIN                       /00097801/ [Concomitant]
  9. PREDNISONE [Concomitant]
     Dosage: 10 MG, QD

REACTIONS (1)
  - Hip fracture [Unknown]
